FAERS Safety Report 9095119 (Version 2)
Quarter: 2013Q1

REPORT INFORMATION
  Report Type: Spontaneous
  Country: TW (occurrence: TW)
  Receive Date: 20130220
  Receipt Date: 20130225
  Transmission Date: 20140127
  Serious: Yes (Death)
  Sender: FDA-Public Use
  Company Number: PHHY2013TW016207

PATIENT
  Age: 53 Year
  Sex: Male
  Weight: 45 kg

DRUGS (3)
  1. MYFORTIC [Suspect]
     Dosage: 01 TABLET FOR 21 DAYS (EACH TAB OF 180 MG)
     Dates: start: 20110423
  2. MYFORTIC [Suspect]
     Dosage: 02 TABLETS FOR 28 DAYS (EACH TAB OF 180 MG)
     Dates: start: 20110623, end: 20110721
  3. CICLOSPORIN [Suspect]
     Dosage: 1 DF, (EACH CAPSULE OF 25 MG FOR 28 DAYS)
     Dates: start: 20110915, end: 20111013

REACTIONS (2)
  - Abdominal pain [Fatal]
  - Dyspnoea [Fatal]
